FAERS Safety Report 5648450-X (Version None)
Quarter: 2008Q1

REPORT INFORMATION
  Report Type: 
  Country: None (occurrence: None)
  Receive Date: 20080229
  Receipt Date: 20080218
  Transmission Date: 20080703
  Serious: Yes (Hospitalization)
  Sender: FDA-Public Use
  Company Number: 2007-DE-000290

PATIENT
  Age: 9 Year
  Sex: Female
  Weight: 21 kg

DRUGS (2)
  1. INCRELEX [Suspect]
     Indication: INSULIN-LIKE GROWTH FACTOR DECREASED
     Dosage: 1 MG, BID, SUBCUTANEOUS
     Route: 058
     Dates: start: 20070925, end: 20071211
  2. AMOXICILLIN [Concomitant]

REACTIONS (13)
  - CONFUSIONAL STATE [None]
  - EYELID OEDEMA [None]
  - HYPOGLYCAEMIA [None]
  - INJECTION SITE INDURATION [None]
  - INJECTION SITE PRURITUS [None]
  - LIP SWELLING [None]
  - PALLOR [None]
  - PARAESTHESIA [None]
  - PHARYNGEAL ERYTHEMA [None]
  - SWELLING [None]
  - TREMOR [None]
  - TYMPANIC MEMBRANE HYPERAEMIA [None]
  - UPPER RESPIRATORY TRACT INFECTION [None]
